FAERS Safety Report 19995691 (Version 1)
Quarter: 2021Q4

REPORT INFORMATION
  Report Type: Spontaneous
  Country: US (occurrence: US)
  Receive Date: 20211026
  Receipt Date: 20211026
  Transmission Date: 20220303
  Serious: Yes (Hospitalization)
  Sender: FDA-Public Use
  Company Number: None

PATIENT
  Age: 33 Year
  Sex: Female
  Weight: 47.25 kg

DRUGS (6)
  1. IBRANCE [Suspect]
     Active Substance: PALBOCICLIB
     Indication: Breast cancer
     Route: 048
     Dates: start: 20210325, end: 20210924
  2. VITAMINS [Concomitant]
     Active Substance: VITAMINS
  3. IBUPROFEN [Concomitant]
     Active Substance: IBUPROFEN
  4. LETROZOLE [Concomitant]
     Active Substance: LETROZOLE
  5. VITAMIN D [Concomitant]
     Active Substance: VITAMIN D NOS
  6. ZOLADEX [Concomitant]
     Active Substance: GOSERELIN ACETATE

REACTIONS (2)
  - Febrile neutropenia [None]
  - White blood cell count decreased [None]

NARRATIVE: CASE EVENT DATE: 20210924
